FAERS Safety Report 10101807 (Version 1)
Quarter: 2014Q2

REPORT INFORMATION
  Report Type: Spontaneous
  Country: US (occurrence: None)
  Receive Date: 20140423
  Receipt Date: 20140423
  Transmission Date: 20141212
  Serious: Yes (Hospitalization)
  Sender: FDA-Public Use
  Company Number: None

PATIENT
  Age: 52 Year
  Sex: Male
  Weight: 130 kg

DRUGS (12)
  1. REVLIMID [Suspect]
     Indication: PLASMA CELL MYELOMA
     Route: 048
  2. ASPIRIN [Concomitant]
  3. METFORMIN [Concomitant]
  4. VALTREX [Concomitant]
  5. CYMBALTA [Concomitant]
  6. LEXAPROL [Concomitant]
  7. NEURONTIN [Concomitant]
  8. ERGOCALCIFEROL [Concomitant]
  9. VICTOZA [Concomitant]
  10. DEPOTESTOSTERONE [Concomitant]
  11. DECADRON [Concomitant]
  12. VELCADE [Concomitant]

REACTIONS (1)
  - Periorbital cellulitis [None]
